FAERS Safety Report 5369811-2 (Version None)
Quarter: 2007Q2

REPORT INFORMATION
  Report Type: 
  Country: None (occurrence: None)
  Receive Date: 20070621
  Receipt Date: 20070613
  Transmission Date: 20071010
  Serious: Yes (Hospitalization)
  Sender: FDA-Public Use
  Company Number: 163-21880-07060710

PATIENT
  Age: 71 Year
  Sex: Male

DRUGS (9)
  1. REVLIMID [Suspect]
     Indication: MULTIPLE MYELOMA
     Dosage: 25 MG, 1 IN 1 D, ORAL
     Route: 048
     Dates: start: 20070530, end: 20070612
  2. DECADRON [Concomitant]
  3. AVELOX [Concomitant]
  4. FLOMAX [Concomitant]
  5. ALLEGRA [Concomitant]
  6. ASPIRIN [Concomitant]
  7. DURAGESIC (FENTANYL) (POULTICE OR PATCH) [Concomitant]
  8. NEXIUM [Concomitant]
  9. COLACE (DUCUSATE SODIUM) [Concomitant]

REACTIONS (2)
  - STEVENS-JOHNSON SYNDROME [None]
  - STOMATITIS [None]
